FAERS Safety Report 16862806 (Version 4)
Quarter: 2019Q4

REPORT INFORMATION
  Report Type: Report from Study
  Country: US (occurrence: US)
  Receive Date: 20190927
  Receipt Date: 20191108
  Transmission Date: 20200122
  Serious: Yes (Hospitalization, Other)
  Sender: FDA-Public Use
  Company Number: US-GILEAD-2019-0430608

PATIENT
  Age: 62 Year
  Sex: Female
  Weight: 87.98 kg

DRUGS (3)
  1. GINGER [ZINGIBER OFFICINALE] [Concomitant]
     Active Substance: GINGER
  2. AMBRISENTAN [Suspect]
     Active Substance: AMBRISENTAN
     Indication: PULMONARY HYPERTENSION
     Dosage: 10 MG
     Route: 065
  3. PRILOSEC [Concomitant]
     Active Substance: OMEPRAZOLE MAGNESIUM

REACTIONS (5)
  - Weight decreased [Unknown]
  - Vomiting [Recovering/Resolving]
  - Intentional dose omission [Unknown]
  - Sjogren^s syndrome [Not Recovered/Not Resolved]
  - Gastric disorder [Recovering/Resolving]

NARRATIVE: CASE EVENT DATE: 201908
